FAERS Safety Report 5499316-X (Version None)
Quarter: 2007Q4

REPORT INFORMATION
  Report Type: 
  Country: None (occurrence: None)
  Receive Date: 20071024
  Receipt Date: 20051003
  Transmission Date: 20080405
  Serious: Yes (Other)
  Sender: FDA-Public Use
  Company Number: 019620

PATIENT
  Age: 56 Year
  Sex: Female

DRUGS (1)
  1. METOCLOPRAMIDE [Suspect]
     Indication: GASTROOESOPHAGEAL REFLUX DISEASE
     Dosage: QID, ORAL
     Route: 048
     Dates: start: 20020701, end: 20050201

REACTIONS (24)
  - BLEPHAROSPASM [None]
  - CHOKING [None]
  - CRYING [None]
  - DECREASED APPETITE [None]
  - DEPRESSION [None]
  - DRY MOUTH [None]
  - DYSKINESIA [None]
  - DYSPHAGIA [None]
  - DYSTONIA [None]
  - EXCESSIVE EYE BLINKING [None]
  - EYELID FUNCTION DISORDER [None]
  - FACIAL PALSY [None]
  - FEELING JITTERY [None]
  - INITIAL INSOMNIA [None]
  - KERATOCONJUNCTIVITIS SICCA [None]
  - LIP DISORDER [None]
  - NASAL CONGESTION [None]
  - ORAL PAIN [None]
  - SLEEP DISORDER [None]
  - SPEECH DISORDER [None]
  - SUBDURAL HAEMATOMA [None]
  - TARDIVE DYSKINESIA [None]
  - THINKING ABNORMAL [None]
  - WEIGHT DECREASED [None]
